FAERS Safety Report 6148788-6 (Version None)
Quarter: 2009Q2

REPORT INFORMATION
  Report Type: 
  Country: None (occurrence: None)
  Receive Date: 20090408
  Receipt Date: 20090330
  Transmission Date: 20091009
  Serious: Yes (Death)
  Sender: FDA-Public Use
  Company Number: NZ-ELI_LILLY_AND_COMPANY-NZ200903004986

PATIENT
  Age: 17 Year
  Sex: Male

DRUGS (4)
  1. PROZAC [Suspect]
     Indication: DEPRESSION
     Dosage: UNK, UNK
     Dates: start: 20070101, end: 20070101
  2. PROZAC [Suspect]
     Dosage: 60 MG, UNK
     Dates: start: 20070501
  3. PROZAC [Suspect]
     Dates: start: 20080101
  4. ALCOHOL [Concomitant]

REACTIONS (9)
  - AGGRESSION [None]
  - ALCOHOL POISONING [None]
  - ANGER [None]
  - DEATH [None]
  - DIABETES MELLITUS [None]
  - MOOD ALTERED [None]
  - OVERDOSE [None]
  - SOMNOLENCE [None]
  - VITAMIN B12 DEFICIENCY [None]
